FAERS Safety Report 5991201-X (Version None)
Quarter: 2008Q4

REPORT INFORMATION
  Report Type: 
  Country: None (occurrence: None)
  Receive Date: 20081202
  Receipt Date: 20071017
  Transmission Date: 20090506
  Serious: Yes (Hospitalization)
  Sender: FDA-Public Use
  Company Number: WAES 0710USA03556

PATIENT
  Age: 25 Year
  Sex: Female

DRUGS (1)
  1. CLINORIL [Suspect]
     Dosage: PO
     Route: 048
     Dates: start: 20070501

REACTIONS (1)
  - WHITE BLOOD CELL COUNT DECREASED [None]
